FAERS Safety Report 10667284 (Version 2)
Quarter: 2014Q4

REPORT INFORMATION
  Report Type: Spontaneous
  Country: GB (occurrence: GB)
  Receive Date: 20141222
  Receipt Date: 20141222
  Transmission Date: 20150529
  Serious: Yes (Other)
  Sender: FDA-Public Use
  Company Number: PHFR2011GB04608

PATIENT
  Sex: Male
  Weight: 105 kg

DRUGS (3)
  1. CLOZARIL [Suspect]
     Active Substance: CLOZAPINE
     Indication: SCHIZOPHRENIA
     Dosage: 450 MG, QD
     Route: 048
     Dates: start: 20110602
  2. CLOZARIL [Suspect]
     Active Substance: CLOZAPINE
     Dosage: UNK
     Route: 048
  3. CLOZARIL [Suspect]
     Active Substance: CLOZAPINE
     Dosage: UNK
     Route: 048
     Dates: start: 20121206, end: 20141209

REACTIONS (5)
  - Ketoacidosis [Unknown]
  - Furuncle [Unknown]
  - Diabetes mellitus [Unknown]
  - Lower respiratory tract infection [Unknown]
  - Antipsychotic drug level below therapeutic [Recovering/Resolving]
